FAERS Safety Report 5994114-2 (Version None)
Quarter: 2008Q4

REPORT INFORMATION
  Report Type: 
  Country: None (occurrence: None)
  Receive Date: 20081210
  Receipt Date: 20081209
  Transmission Date: 20090506
  Serious: Yes (Death, Hospitalization)
  Sender: FDA-Public Use
  Company Number: 2007-161460-NL

PATIENT
  Age: 40 Year
  Sex: Male

DRUGS (11)
  1. DEXAMETHASONE [Suspect]
     Indication: HODGKIN'S DISEASE
     Route: 037
  2. DOXORUBICIN HCL [Suspect]
     Indication: HODGKIN'S DISEASE
     Dosage: DF
  3. BLEOMYCIN SULFATE [Suspect]
     Indication: HODGKIN'S DISEASE
     Dosage: DF
  4. CISPLATIN [Suspect]
     Indication: HODGKIN'S DISEASE
     Dosage: DF
  5. CYCLOPHOSPHAMIDE [Suspect]
     Indication: HODGKIN'S DISEASE
     Dosage: DF
  6. CYTARABINE [Suspect]
     Indication: HODGKIN'S DISEASE
     Dosage: DF
     Route: 037
  7. ETOPOSIDE [Suspect]
     Indication: HODGKIN'S DISEASE
     Dosage: DF
  8. METHOTREXATE [Suspect]
     Indication: HODGKIN'S DISEASE
     Dosage: DF
     Route: 037
  9. PREDNISONE TAB [Suspect]
     Indication: HODGKIN'S DISEASE
     Dosage: DF
  10. PROCARBAZINE HYDROCHLORIDE [Suspect]
     Indication: HODGKIN'S DISEASE
     Dosage: DF
  11. VINCRISTINE [Suspect]
     Indication: HODGKIN'S DISEASE
     Dosage: DF

REACTIONS (10)
  - ATAXIA [None]
  - DRUG EFFECT DECREASED [None]
  - FEBRILE NEUTROPENIA [None]
  - GAIT DISTURBANCE [None]
  - HEADACHE [None]
  - MALIGNANT NEOPLASM PROGRESSION [None]
  - METASTASIS [None]
  - PARAESTHESIA [None]
  - PARAPARESIS [None]
  - SPINAL ANAESTHESIA [None]
